FAERS Safety Report 8250785-1 (Version None)
Quarter: 2012Q1

REPORT INFORMATION
  Report Type: 
  Country: None (occurrence: None)
  Receive Date: 20120328
  Receipt Date: 20120314
  Transmission Date: 20120608
  Serious: Yes (Death)
  Sender: FDA-Public Use
  Company Number: UTC-016692

PATIENT
  Age: 63 Year
  Sex: Female
  Weight: 59.09 kg

DRUGS (2)
  1. TYVASO [Suspect]
     Indication: COR PULMONALE CHRONIC
     Dosage: 18-54 MCG (4 IN 1 D) INHALATION
     Route: 055
     Dates: start: 20120109
  2. ADCIRCA [Concomitant]

REACTIONS (1)
  - DEATH [None]
